FAERS Safety Report 4432310-6 (Version None)
Quarter: 2004Q3

REPORT INFORMATION
  Report Type: 
  Country: None (occurrence: None)
  Receive Date: 20040820
  Receipt Date: 20040806
  Transmission Date: 20050211
  Serious: Yes (Hospitalization)
  Sender: FDA-Public Use
  Company Number: 04P-151-0269746-00

PATIENT
  Age: 92 Year
  Sex: Female

DRUGS (8)
  1. ISOPTIN [Suspect]
     Dosage: 120 MG, 1 IN 1 D, ORAL
     Route: 048
     Dates: end: 20040709
  2. DIGOXIN [Suspect]
     Dosage: 0.25 MG, 5 IN 1 WK, PER ORAL
     Route: 048
     Dates: end: 20040709
  3. ENALAPRIL MALEATE [Concomitant]
  4. METOLAZONE [Concomitant]
  5. ALOXIPRIN [Concomitant]
  6. MAGNESIUM [Concomitant]
  7. GLIMEPRIDE [Concomitant]
  8. ALLOPURINOL [Concomitant]

REACTIONS (7)
  - ASTHENIA [None]
  - BRADYCARDIA [None]
  - DIZZINESS [None]
  - DYSPNOEA [None]
  - HYPERKALAEMIA [None]
  - RENAL FAILURE [None]
  - THERAPEUTIC AGENT TOXICITY [None]
